FAERS Safety Report 19143456 (Version 2)
Quarter: 2021Q2

REPORT INFORMATION
  Report Type: Report from Study
  Country: US (occurrence: US)
  Receive Date: 20210416
  Receipt Date: 20210423
  Transmission Date: 20210717
  Serious: Yes (Hospitalization)
  Sender: FDA-Public Use
  Company Number: US-INSMED, INC.-2021-07874-US

PATIENT
  Sex: Male

DRUGS (1)
  1. ARIKAYCE [Suspect]
     Active Substance: AMIKACIN
     Indication: MYCOBACTERIAL INFECTION
     Dosage: 590 MILLIGRAM, QD
     Route: 055
     Dates: start: 202102, end: 2021

REACTIONS (14)
  - Discomfort [Not Recovered/Not Resolved]
  - Device issue [Unknown]
  - Sputum increased [Unknown]
  - Tinnitus [Unknown]
  - Dyspnoea [Unknown]
  - Palliative care [Unknown]
  - Cough [Unknown]
  - Haemoptysis [Unknown]
  - Product dose omission issue [Unknown]
  - Hospitalisation [Unknown]
  - Heart rate increased [Unknown]
  - Hospice care [Unknown]
  - Oropharyngeal discomfort [Unknown]
  - Therapy interrupted [Unknown]

NARRATIVE: CASE EVENT DATE: 2021
